FAERS Safety Report 14631960 (Version 2)
Quarter: 2018Q2

REPORT INFORMATION
  Report Type: Spontaneous
  Country: US (occurrence: US)
  Receive Date: 20180313
  Receipt Date: 20180404
  Transmission Date: 20180711
  Serious: Yes (Other)
  Sender: FDA-Public Use
  Company Number: US-GILEAD-2018-0325206

PATIENT
  Age: 45 Year
  Sex: Male
  Weight: 85.26 kg

DRUGS (5)
  1. CITALOPRAM [Concomitant]
     Active Substance: CITALOPRAM HYDROBROMIDE
  2. DEPAKOTE [Concomitant]
     Active Substance: DIVALPROEX SODIUM
  3. TRUVADA [Suspect]
     Active Substance: EMTRICITABINE\TENOFOVIR DISOPROXIL FUMARATE
     Indication: PROPHYLAXIS AGAINST HIV INFECTION
     Dosage: UNK
     Route: 048
     Dates: start: 20171221, end: 20180306
  4. CLONAZEPAM. [Concomitant]
     Active Substance: CLONAZEPAM
  5. LAMICTAL [Concomitant]
     Active Substance: LAMOTRIGINE

REACTIONS (2)
  - Drug ineffective [Unknown]
  - Acute HIV infection [Not Recovered/Not Resolved]

NARRATIVE: CASE EVENT DATE: 20180305
